FAERS Safety Report 14995426 (Version 1)
Quarter: 2018Q2

REPORT INFORMATION
  Report Type: Spontaneous
  Country: US (occurrence: US)
  Receive Date: 20180611
  Receipt Date: 20180611
  Transmission Date: 20180711
  Serious: Yes (Other)
  Sender: FDA-Public Use
  Company Number: US-SA-2018SA151491

PATIENT
  Age: 56 Year
  Sex: Female
  Weight: 113.39 kg

DRUGS (4)
  1. ASPIRINE [Concomitant]
     Active Substance: ASPIRIN
  2. TAXOTERE [Suspect]
     Active Substance: DOCETAXEL
     Dosage: 175 MG, QW
     Route: 042
     Dates: start: 20100429, end: 20100429
  3. TAXOTERE [Suspect]
     Active Substance: DOCETAXEL
     Indication: BREAST CANCER
     Dosage: 175 MG, QW
     Route: 042
     Dates: start: 20091217, end: 20091217
  4. CARBOPLATIN. [Concomitant]
     Active Substance: CARBOPLATIN
     Dosage: 175 MG, QW

REACTIONS (1)
  - Alopecia [Recovering/Resolving]

NARRATIVE: CASE EVENT DATE: 20101029
